FAERS Safety Report 19677080 (Version 3)
Quarter: 2021Q3

REPORT INFORMATION
  Report Type: Spontaneous
  Country: US (occurrence: US)
  Receive Date: 20210809
  Receipt Date: 20210924
  Transmission Date: 20211014
  Serious: Yes (Hospitalization, Other)
  Sender: FDA-Public Use
  Company Number: US-PFIZER INC-202100992585

PATIENT
  Age: 78 Year
  Sex: Female
  Weight: 54.42 kg

DRUGS (4)
  1. PREMARIN [Suspect]
     Active Substance: ESTROGENS, CONJUGATED
     Indication: MICTURITION URGENCY
     Dosage: UNK UNK, WEEKLY (THREE TIMES A WEEK)
  2. PREMARIN [Suspect]
     Active Substance: ESTROGENS, CONJUGATED
     Dosage: SMALL AMOUNT, WEEKLY (ONCE A WEEK)
     Dates: start: 2014
  3. PREMARIN [Suspect]
     Active Substance: ESTROGENS, CONJUGATED
     Indication: INCONTINENCE
     Dosage: 0.625 MG, WEEKLY (ONCE A WEEK)
  4. PREMARIN [Suspect]
     Active Substance: ESTROGENS, CONJUGATED
     Indication: URINARY INCONTINENCE
     Dosage: 0.625 MG EVERY OTHER DAY
     Route: 067

REACTIONS (9)
  - Tooth loss [Not Recovered/Not Resolved]
  - Asthenia [Recovered/Resolved]
  - Wrong technique in device usage process [Unknown]
  - Off label use [Unknown]
  - Intentional product misuse [Unknown]
  - Drug effective for unapproved indication [Unknown]
  - Expired product administered [Unknown]
  - Lip and/or oral cavity cancer [Recovered/Resolved]
  - Eating disorder [Not Recovered/Not Resolved]

NARRATIVE: CASE EVENT DATE: 2019
